FAERS Safety Report 22979549 (Version 2)
Quarter: 2025Q1

REPORT INFORMATION
  Report Type: Spontaneous
  Country: JP (occurrence: JP)
  Receive Date: 20230925
  Receipt Date: 20250324
  Transmission Date: 20250408
  Serious: Yes (Other)
  Sender: RIGEL PHARMACEUTICALS
  Company Number: US-RIGEL Pharmaceuticals, INC-2023FOS001000

PATIENT

DRUGS (3)
  1. TAVALISSE [Suspect]
     Active Substance: FOSTAMATINIB
     Indication: Product used for unknown indication
     Dosage: 200 MG/ DAY
     Route: 048
     Dates: start: 202305
  2. ADRENAL GLAND [Concomitant]
     Indication: Product used for unknown indication
     Route: 048
  3. ROMIPLOSTIM [Concomitant]
     Active Substance: ROMIPLOSTIM
     Indication: Product used for unknown indication
     Route: 058

REACTIONS (1)
  - Platelet count decreased [Unknown]
